FAERS Safety Report 25862750 (Version 1)
Quarter: 2025Q3

REPORT INFORMATION
  Report Type: Spontaneous
  Country: US (occurrence: US)
  Receive Date: 20250930
  Receipt Date: 20250930
  Transmission Date: 20251021
  Serious: Yes (Other)
  Sender: ASTELLAS
  Company Number: US-ASTELLAS-2025-AER-053324

PATIENT
  Age: 74 Year
  Sex: Male

DRUGS (3)
  1. PADCEV [Suspect]
     Active Substance: ENFORTUMAB VEDOTIN-EJFV
     Indication: Transitional cell carcinoma metastatic
     Route: 065
     Dates: start: 20250416
  2. SACITUZUMAB [Concomitant]
     Active Substance: SACITUZUMAB
     Indication: Breast cancer
     Route: 065
  3. SACITUZUMAB [Concomitant]
     Active Substance: SACITUZUMAB
     Indication: Immunisation

REACTIONS (1)
  - Neuropathy peripheral [Unknown]
